FAERS Safety Report 24404093 (Version 1)
Quarter: 2024Q4

REPORT INFORMATION
  Report Type: Spontaneous
  Country: US (occurrence: None)
  Receive Date: 20241004
  Receipt Date: 20241004
  Transmission Date: 20250115
  Serious: Yes (Hospitalization)
  Sender: Public
  Company Number: None

PATIENT
  Age: 64 Year
  Sex: Male

DRUGS (1)
  1. AUGTYRO [Suspect]
     Active Substance: REPOTRECTINIB
     Indication: Lung neoplasm malignant
     Dosage: FREQUENCY : DAILY;?

REACTIONS (7)
  - Pain in extremity [None]
  - Sensitive skin [None]
  - Skin erosion [None]
  - Hyperaesthesia [None]
  - Dysgeusia [None]
  - Weight increased [None]
  - Liver function test increased [None]
